FAERS Safety Report 9609370 (Version 1)
Quarter: 2013Q4

REPORT INFORMATION
  Report Type: Spontaneous
  Country: US (occurrence: None)
  Receive Date: 20131007
  Receipt Date: 20131007
  Transmission Date: 20140711
  Serious: Yes (Hospitalization)
  Sender: FDA-Public Use
  Company Number: None

PATIENT
  Age: 62 Year
  Sex: Female
  Weight: 59 kg

DRUGS (7)
  1. VANCOMYCIN [Suspect]
     Indication: DEVICE RELATED SEPSIS
     Route: 042
     Dates: start: 20130402, end: 20130408
  2. DAPTOMYCIN [Suspect]
     Indication: DEVICE RELATED SEPSIS
     Route: 042
     Dates: start: 20130408, end: 20130411
  3. ENOXAPARIN [Concomitant]
  4. NYSTATIN [Concomitant]
  5. FLUCONAZOLE [Concomitant]
  6. PIPERACILLIN/TAZOBACTAM [Concomitant]
  7. PARENTAL NUTRITION [Concomitant]

REACTIONS (4)
  - Tachycardia [None]
  - Pyrexia [None]
  - Tubulointerstitial nephritis [None]
  - Renal failure acute [None]
